FAERS Safety Report 19616184 (Version 1)
Quarter: 2021Q3

REPORT INFORMATION
  Report Type: Spontaneous
  Country: US (occurrence: US)
  Receive Date: 20210727
  Receipt Date: 20210727
  Transmission Date: 20211014
  Serious: No
  Sender: FDA-Public Use
  Company Number: US-ABBVIE-21K-163-3844637-00

PATIENT
  Age: 57 Year
  Sex: Female
  Weight: 110.78 kg

DRUGS (2)
  1. CYTOMEL [Concomitant]
     Active Substance: LIOTHYRONINE SODIUM
     Indication: PRODUCT USED FOR UNKNOWN INDICATION
  2. SYNTHROID [Suspect]
     Active Substance: LEVOTHYROXINE SODIUM
     Indication: HYPOTHYROIDISM
     Dosage: 1 TAB 6 DAYS A WEEK + 1/2 TAB ON SUNDAY
     Route: 048
     Dates: start: 2019

REACTIONS (1)
  - Blood thyroid stimulating hormone decreased [Not Recovered/Not Resolved]
